FAERS Safety Report 23121977 (Version 2)
Quarter: 2023Q4

REPORT INFORMATION
  Report Type: Report from Study
  Country: AU (occurrence: AU)
  Receive Date: 20231030
  Receipt Date: 20231031
  Transmission Date: 20240110
  Serious: Yes (Death)
  Sender: FDA-Public Use
  Company Number: AU-Eisai-EC-2023-151621

PATIENT
  Age: 83 Year
  Sex: Male
  Weight: 85.2 kg

DRUGS (13)
  1. LENVATINIB [Suspect]
     Active Substance: LENVATINIB
     Indication: Hormone-refractory prostate cancer
     Route: 048
     Dates: start: 20230327, end: 20230703
  2. PEMBROLIZUMAB [Suspect]
     Active Substance: PEMBROLIZUMAB
     Indication: Hormone-refractory prostate cancer
     Dates: start: 20230327, end: 20230710
  3. AMIODARONE HYDROCHLORIDE [Concomitant]
     Active Substance: AMIODARONE HYDROCHLORIDE
     Dates: start: 201407
  4. DIGOXIN [Concomitant]
     Active Substance: DIGOXIN
     Dosage: 62.5
     Dates: start: 201907
  5. ELIQUIS [Concomitant]
     Active Substance: APIXABAN
     Dates: start: 201407
  6. MAGNESIUM ASPARTATE [Concomitant]
     Active Substance: MAGNESIUM ASPARTATE
     Dates: start: 201907
  7. ATORVASTATIN [Concomitant]
     Active Substance: ATORVASTATIN
     Dates: start: 202307
  8. CARTIA [Concomitant]
     Dates: start: 201007
  9. CHOLECALCIFEROL [Concomitant]
     Active Substance: CHOLECALCIFEROL
     Dates: start: 202207
  10. MELOTIN MR [Concomitant]
     Dates: start: 202207
  11. ELIGARD [Concomitant]
     Active Substance: LEUPROLIDE ACETATE
     Dates: start: 20230327
  12. VALSARTAN [Concomitant]
     Active Substance: VALSARTAN
     Dates: start: 20230707
  13. BISOPROLOL [Concomitant]
     Active Substance: BISOPROLOL\BISOPROLOL FUMARATE
     Dates: start: 201007

REACTIONS (1)
  - Malignant neoplasm progression [Fatal]

NARRATIVE: CASE EVENT DATE: 20230823
